FAERS Safety Report 9838812 (Version 2)
Quarter: 2016Q1

REPORT INFORMATION
  Report Type: Spontaneous
  Country: US (occurrence: US)
  Receive Date: 20140123
  Receipt Date: 20160222
  Transmission Date: 20160526
  Serious: Yes (Other)
  Sender: FDA-Public Use
  Company Number: US-PFIZER INC-2014021530

PATIENT
  Age: 42 Year
  Sex: Female
  Weight: 113.38 kg

DRUGS (1)
  1. LYRICA [Suspect]
     Active Substance: PREGABALIN
     Indication: MULTIPLE SCLEROSIS
     Dosage: UNK
     Dates: start: 2005

REACTIONS (3)
  - Drug ineffective for unapproved indication [Unknown]
  - Pain [Unknown]
  - Drug dose omission [Unknown]
